FAERS Safety Report 8085014-5 (Version None)
Quarter: 2012Q1

REPORT INFORMATION
  Report Type: 
  Country: None (occurrence: None)
  Receive Date: 20120128
  Receipt Date: 20110311
  Transmission Date: 20120608
  Serious: No
  Sender: FDA-Public Use
  Company Number: US-ABBOTT-11P-163-0711131-00

PATIENT
  Age: 36 Year
  Sex: Male

DRUGS (6)
  1. LEXAPRO [Concomitant]
     Indication: ANXIETY
  2. MULTI-VITAMIN [Concomitant]
     Indication: VITAMIN SUPPLEMENTATION
  3. AMBIEN [Concomitant]
     Indication: INSOMNIA
  4. LEXAPRO [Concomitant]
     Indication: DEPRESSION
  5. XANAX [Concomitant]
     Indication: ANXIETY
  6. HUMIRA [Suspect]
     Indication: PSORIATIC ARTHROPATHY
     Dates: start: 20110101

REACTIONS (1)
  - INJECTION SITE REACTION [None]
